FAERS Safety Report 7825481-2 (Version None)
Quarter: 2011Q4

REPORT INFORMATION
  Report Type: 
  Country: None (occurrence: None)
  Receive Date: 20111019
  Receipt Date: 20111007
  Transmission Date: 20120403
  Serious: Yes (Death, Hospitalization)
  Sender: FDA-Public Use
  Company Number: JP-CELGENEUS-087-21880-11100812

PATIENT
  Sex: Male

DRUGS (7)
  1. DEXAMETHASONE [Suspect]
     Indication: MULTIPLE MYELOMA
     Dosage: 20 MILLIGRAM
     Route: 048
     Dates: start: 20110809, end: 20110816
  2. LORFENAMIN [Concomitant]
     Dosage: 180 MILLIGRAM
     Route: 048
     Dates: end: 20110821
  3. ARGAMATE [Concomitant]
     Indication: PROPHYLAXIS
     Dosage: 75 GRAM
     Route: 048
     Dates: end: 20110821
  4. REVLIMID [Suspect]
     Indication: MULTIPLE MYELOMA
     Dosage: 15 MILLIGRAM
     Route: 048
     Dates: start: 20110808, end: 20110821
  5. ZOVIRAX [Concomitant]
     Indication: PROPHYLAXIS
     Dosage: 1 TABLET
     Route: 048
     Dates: end: 20110821
  6. ACETAMINOPHEN [Concomitant]
     Dosage: 6 TABLET
     Route: 048
     Dates: end: 20110821
  7. FLUCONAZOLE [Concomitant]
     Indication: PROPHYLAXIS
     Dosage: 2 CAPSULE
     Route: 048
     Dates: end: 20110821

REACTIONS (2)
  - WHITE BLOOD CELL COUNT DECREASED [None]
  - SEPSIS [None]
